FAERS Safety Report 6243948-8 (Version None)
Quarter: 2009Q2

REPORT INFORMATION
  Report Type: 
  Country: None (occurrence: None)
  Receive Date: 20090623
  Receipt Date: 20090610
  Transmission Date: 20091009
  Serious: Yes (Other)
  Sender: FDA-Public Use
  Company Number: 236515K09USA

PATIENT
  Age: 24 Year
  Sex: Female

DRUGS (1)
  1. REBIF [Suspect]
     Indication: MULTIPLE SCLEROSIS
     Dosage: 44 MCG, 3 IN1 WEEKS, SUBCUTANEOUS
     Route: 058
     Dates: start: 20080613

REACTIONS (6)
  - INFLUENZA [None]
  - INJECTION SITE ERYTHEMA [None]
  - INJECTION SITE HAEMATOMA [None]
  - PITUITARY CYST [None]
  - PITUITARY ENLARGEMENT [None]
  - RED BLOOD CELL COUNT DECREASED [None]
